FAERS Safety Report 19093733 (Version 17)
Quarter: 2023Q2

REPORT INFORMATION
  Report Type: Report from Study
  Country: KR (occurrence: KR)
  Receive Date: 20210405
  Receipt Date: 20230602
  Transmission Date: 20230721
  Serious: Yes (Hospitalization, Other)
  Sender: FDA-Public Use
  Company Number: KR-TAKEDA-2021TUS016072

PATIENT
  Age: 63 Year
  Sex: Male
  Weight: 68.6 kg

DRUGS (7)
  1. BRIGATINIB [Suspect]
     Active Substance: BRIGATINIB
     Indication: Non-small cell lung cancer
     Dosage: 90 MILLIGRAM, QD
     Route: 048
     Dates: start: 20201110, end: 20201116
  2. BRIGATINIB [Suspect]
     Active Substance: BRIGATINIB
     Dosage: 180 MILLIGRAM, QD
     Route: 048
     Dates: start: 20201117, end: 20210801
  3. BRIGATINIB [Suspect]
     Active Substance: BRIGATINIB
     Dosage: 120 MILLIGRAM, QD
     Route: 048
     Dates: start: 20210802
  4. LANSOPRAZOLE [Concomitant]
     Active Substance: LANSOPRAZOLE
     Indication: Gastritis prophylaxis
     Dosage: 15 MILLIGRAM
     Route: 048
     Dates: start: 20201104
  5. EZETIMIBE\ROSUVASTATIN [Concomitant]
     Active Substance: EZETIMIBE\ROSUVASTATIN
     Indication: Type I hyperlipidaemia
     Dosage: 10/10 MG
     Route: 048
     Dates: start: 20201104
  6. ALGIN N [Concomitant]
     Indication: Prophylaxis
     Dosage: UNK
     Route: 048
     Dates: start: 20201104, end: 20201214
  7. PLAVITOR [Concomitant]
     Indication: Spinal cord infarction
     Dosage: UNK
     Route: 048
     Dates: start: 20201104, end: 20201202

REACTIONS (8)
  - Diarrhoea [Recovered/Resolved]
  - Epididymitis [Recovered/Resolved]
  - White blood cell count increased [Recovered/Resolved]
  - Sensory disturbance [Recovered/Resolved]
  - Blood creatine phosphokinase increased [Recovering/Resolving]
  - Antimicrobial susceptibility test resistant [Recovered/Resolved]
  - Epistaxis [Recovered/Resolved]
  - Headache [Recovered/Resolved]

NARRATIVE: CASE EVENT DATE: 20201116
